FAERS Safety Report 15152661 (Version 14)
Quarter: 2019Q1

REPORT INFORMATION
  Report Type: Report from Study
  Country: CA (occurrence: CA)
  Receive Date: 20180717
  Receipt Date: 20190326
  Transmission Date: 20190417
  Serious: Yes (Other)
  Sender: FDA-Public Use
  Company Number: CA-BRISTOL-MYERS SQUIBB COMPANY-BMS-2018-040551

PATIENT
  Age: 49 Year
  Sex: Female

DRUGS (4)
  1. NIVOLUMAB [Suspect]
     Active Substance: NIVOLUMAB
     Indication: PRODUCT USED FOR UNKNOWN INDICATION
     Dosage: 195 MG, Q2WK
     Route: 065
     Dates: start: 20180430
  2. ADVIL (MEFENAMIC ACID) [Suspect]
     Active Substance: MEFENAMIC ACID
     Indication: HEADACHE
     Dosage: UNK
     Route: 065
  3. NIVOLUMAB [Suspect]
     Active Substance: NIVOLUMAB
     Indication: MALIGNANT MELANOMA
     Dosage: 3 MG/KG, Q2WK
     Route: 042
     Dates: start: 20180430, end: 20190227
  4. NIVOLUMAB [Suspect]
     Active Substance: NIVOLUMAB
     Indication: PRODUCT USED FOR UNKNOWN INDICATION
     Dosage: 195 MG, Q2WK
     Route: 042
     Dates: start: 20180515

REACTIONS (19)
  - Anxiety [Unknown]
  - Rash [Recovered/Resolved]
  - Pyrexia [Recovered/Resolved]
  - Pneumonia [Unknown]
  - Nausea [Recovered/Resolved]
  - Oropharyngeal pain [Recovered/Resolved]
  - Off label use [Unknown]
  - Somnolence [Unknown]
  - Headache [Recovered/Resolved]
  - Cough [Recovered/Resolved]
  - Fatigue [Recovered/Resolved]
  - Mass [Not Recovered/Not Resolved]
  - Cognitive disorder [Recovering/Resolving]
  - Decreased appetite [Unknown]
  - Choking [Recovered/Resolved]
  - Pulmonary toxicity [Unknown]
  - Hypotension [Recovered/Resolved]
  - Malaise [Unknown]
  - Depression [Unknown]

NARRATIVE: CASE EVENT DATE: 20180430
